FAERS Safety Report 25218440 (Version 2)
Quarter: 2025Q3

REPORT INFORMATION
  Report Type: Report from Study
  Country: US (occurrence: US)
  Receive Date: 20250421
  Receipt Date: 20250825
  Transmission Date: 20251020
  Serious: Yes (Other)
  Sender: ABBVIE
  Company Number: US-ABBVIE-6238615

PATIENT
  Age: 67 Year
  Sex: Female

DRUGS (1)
  1. RINVOQ [Suspect]
     Active Substance: UPADACITINIB
     Indication: Rheumatoid arthritis
     Route: 048
     Dates: start: 202406

REACTIONS (6)
  - Heart valve incompetence [Recovering/Resolving]
  - Cardiac valve disease [Recovering/Resolving]
  - Back pain [Unknown]
  - Weight decreased [Recovering/Resolving]
  - Dyspnoea [Recovering/Resolving]
  - Pulmonary function test abnormal [Unknown]

NARRATIVE: CASE EVENT DATE: 20250101
